FAERS Safety Report 5321274-9 (Version None)
Quarter: 2007Q2

REPORT INFORMATION
  Report Type: 
  Country: None (occurrence: None)
  Receive Date: 20070507
  Receipt Date: 20070507
  Transmission Date: 20071010
  Serious: Yes (Other)
  Sender: FDA-Public Use
  Company Number: None

PATIENT
  Age: 39 Year
  Sex: Female
  Weight: 88.4514 kg

DRUGS (1)
  1. LITHIUM CARBONATE [Suspect]
     Indication: BIPOLAR DISORDER
     Dosage: 2 CAP IN AM, 3 IN PM 2X DAY PO  INDEFINITE
     Route: 048
     Dates: start: 20061001, end: 20070505

REACTIONS (20)
  - CARDIAC FLUTTER [None]
  - CONFUSIONAL STATE [None]
  - CONSTIPATION [None]
  - COORDINATION ABNORMAL [None]
  - DIARRHOEA [None]
  - DYSARTHRIA [None]
  - DYSKINESIA [None]
  - FALL [None]
  - FATIGUE [None]
  - GASTROOESOPHAGEAL REFLUX DISEASE [None]
  - HALLUCINATION, VISUAL [None]
  - HEADACHE [None]
  - LOSS OF CONSCIOUSNESS [None]
  - MUSCLE TWITCHING [None]
  - NAUSEA [None]
  - PALPITATIONS [None]
  - POLLAKIURIA [None]
  - RASH [None]
  - THIRST [None]
  - VOMITING [None]
